FAERS Safety Report 6495431-2 (Version None)
Quarter: 2009Q4

REPORT INFORMATION
  Report Type: 
  Country: None (occurrence: None)
  Receive Date: 20091214
  Receipt Date: 20090622
  Transmission Date: 20100525
  Serious: No
  Sender: FDA-Public Use
  Company Number: US-BRISTOL-MYERS SQUIBB COMPANY-14674162

PATIENT
  Age: 26 Year
  Sex: Female
  Weight: 70 kg

DRUGS (2)
  1. ABILIFY [Suspect]
  2. LEXAPRO [Concomitant]

REACTIONS (4)
  - AMNESIA [None]
  - CHILLS [None]
  - MUSCLE RIGIDITY [None]
  - PANIC ATTACK [None]
